FAERS Safety Report 12681422 (Version 2)
Quarter: 2016Q4

REPORT INFORMATION
  Report Type: Spontaneous
  Country: CA (occurrence: CA)
  Receive Date: 20160824
  Receipt Date: 20161005
  Transmission Date: 20170207
  Serious: Yes (Hospitalization)
  Sender: FDA-Public Use
  Company Number: CA-LPDUSPRD-20160732

PATIENT
  Age: 74 Year
  Sex: Female
  Weight: 74.84 kg

DRUGS (16)
  1. AMLODIPINE [Concomitant]
     Active Substance: AMLODIPINE BESYLATE
  2. VENOFER [Suspect]
     Active Substance: IRON SUCROSE
     Dosage: 45 ML 1X WEEKLY FOR 3 WKS
     Route: 042
     Dates: start: 20160119, end: 20160210
  3. NEXIUM [Concomitant]
     Active Substance: ESOMEPRAZOLE MAGNESIUM
  4. LORAZEPAM. [Concomitant]
     Active Substance: LORAZEPAM
  5. VITAMIN D [Concomitant]
     Active Substance: CHOLECALCIFEROL
  6. DIOVAN [Concomitant]
     Active Substance: VALSARTAN
  7. TYLENOL [Concomitant]
     Active Substance: ACETAMINOPHEN
     Dosage: TAKEN PRN
     Route: 065
  8. ADVAIR HFA [Concomitant]
     Active Substance: FLUTICASONE PROPIONATE\SALMETEROL XINAFOATE
  9. BENZTROPINE MESYLATE. [Concomitant]
     Active Substance: BENZTROPINE MESYLATE
  10. RISPERIDONE. [Concomitant]
     Active Substance: RISPERIDONE
  11. SEROQUEL [Concomitant]
     Active Substance: QUETIAPINE FUMARATE
  12. VENTOLIN HFA [Concomitant]
     Active Substance: ALBUTEROL SULFATE
  13. BESYLATE [Concomitant]
     Dosage: DOSE NOT PROVIDED
     Route: 065
  14. HYDROCHLOROTHIAZIDE. [Concomitant]
     Active Substance: HYDROCHLOROTHIAZIDE
  15. ASPIRIN (LOW-DOSE 81 MG) [Concomitant]
  16. CRANBERRY COMPLEX [Concomitant]

REACTIONS (3)
  - Off label use [Unknown]
  - Asthenia [Unknown]
  - Blood potassium decreased [Unknown]

NARRATIVE: CASE EVENT DATE: 20160223
